FAERS Safety Report 9104335 (Version 1)
Quarter: 2013Q1

REPORT INFORMATION
  Report Type: Spontaneous
  Country: GB (occurrence: GB)
  Receive Date: 20130220
  Receipt Date: 20130220
  Transmission Date: 20140127
  Serious: Yes (Other)
  Sender: FDA-Public Use
  Company Number: PHHY2013GB014577

PATIENT
  Age: 73 Year
  Sex: Female
  Weight: 101 kg

DRUGS (11)
  1. TEMAZEPAM [Suspect]
     Dosage: 5 ML
     Route: 048
     Dates: start: 20130126, end: 20130127
  2. ARTHROTEC [Concomitant]
     Dosage: 75 MG, BID
  3. AVAMYS [Concomitant]
     Dosage: 27.5 UG, QD
     Route: 045
  4. BUDESONIDE W/FORMOTEROL FUMARATE [Concomitant]
     Dosage: 2 DF, BID
     Route: 055
  5. CARBOCISTEINE [Concomitant]
     Dosage: 750 MG, BID
  6. CETIRIZINE [Concomitant]
     Dosage: 10 MG, QD
  7. MONTELUKAST [Concomitant]
     Dosage: 10 MG, QD AT NIGHT
  8. NITROLINGUAL [Concomitant]
     Dosage: 400 UG,WHEN NEEDED
  9. SALBUTAMOL [Concomitant]
     Dosage: 200 UG, QID
  10. TILDIEM [Concomitant]
     Dosage: 90 MG, BID
  11. TIOTROPIUM BROMIDE [Concomitant]
     Dosage: 18 UG, QD

REACTIONS (1)
  - Oedema [Recovered/Resolved]
